FAERS Safety Report 4852918-3 (Version None)
Quarter: 2005Q4

REPORT INFORMATION
  Report Type: 
  Country: None (occurrence: None)
  Receive Date: 20051212
  Receipt Date: 20051130
  Transmission Date: 20060501
  Serious: Yes (Other)
  Sender: FDA-Public Use
  Company Number: 2005JP002310

PATIENT
  Sex: Female
  Weight: 2.2 kg

DRUGS (4)
  1. PROGRAF [Suspect]
     Dosage: TRANSPLACENTAL
     Route: 064
     Dates: end: 20051023
  2. AZATHIOPRINE [Concomitant]
  3. PREDNISONE [Concomitant]
  4. METHYLDOPA [Concomitant]

REACTIONS (4)
  - CAESAREAN SECTION [None]
  - DRUG EXPOSURE DURING PREGNANCY [None]
  - RASH PUSTULAR [None]
  - SKIN DISORDER [None]
